FAERS Safety Report 5707596-8 (Version None)
Quarter: 2008Q2

REPORT INFORMATION
  Report Type: 
  Country: None (occurrence: None)
  Receive Date: 20080416
  Receipt Date: 20080410
  Transmission Date: 20081010
  Serious: Yes (Disabling)
  Sender: FDA-Public Use
  Company Number: US-MERCK-0706USA00871

PATIENT
  Age: 56 Year
  Sex: Male
  Weight: 73 kg

DRUGS (5)
  1. FOSAMAX [Suspect]
     Indication: OSTEOPOROSIS
     Route: 048
     Dates: start: 19970101
  2. FOSAMAX [Suspect]
     Route: 048
     Dates: end: 20050101
  3. FOSAMAX [Suspect]
     Indication: OSTEOPENIA
     Route: 048
     Dates: start: 19970101
  4. FOSAMAX [Suspect]
     Route: 048
     Dates: end: 20050101
  5. PROMIFEN (PREDNISONE) [Concomitant]
     Route: 065
     Dates: start: 19730101

REACTIONS (25)
  - ANXIETY [None]
  - AORTIC VALVE INCOMPETENCE [None]
  - APHTHOUS STOMATITIS [None]
  - ASTHMA [None]
  - ATRIAL TACHYCARDIA [None]
  - BACK INJURY [None]
  - BLOOD CHOLESTEROL INCREASED [None]
  - CARDIAC FAILURE CONGESTIVE [None]
  - COMPRESSION FRACTURE [None]
  - CONGESTIVE CARDIOMYOPATHY [None]
  - DEPRESSION [None]
  - GASTROOESOPHAGEAL REFLUX DISEASE [None]
  - HERPES ZOSTER [None]
  - HYPERCHOLESTEROLAEMIA [None]
  - HYPERTENSION [None]
  - HYPOTENSION [None]
  - INFLUENZA LIKE ILLNESS [None]
  - INJURY [None]
  - MUSCULAR WEAKNESS [None]
  - MUSCULOSKELETAL CHEST PAIN [None]
  - NEUROPATHY PERIPHERAL [None]
  - PNEUMONIA [None]
  - RESORPTION BONE INCREASED [None]
  - STOMATITIS [None]
  - TYPE 2 DIABETES MELLITUS [None]
